FAERS Safety Report 21668362 (Version 1)
Quarter: 2022Q4

REPORT INFORMATION
  Report Type: Spontaneous
  Country: US (occurrence: US)
  Receive Date: 20221201
  Receipt Date: 20221201
  Transmission Date: 20230112
  Serious: No
  Sender: FDA-Public Use
  Company Number: US-BIOGEN-2022BI01135825

PATIENT
  Sex: Female

DRUGS (4)
  1. TECFIDERA [Suspect]
     Active Substance: DIMETHYL FUMARATE
     Indication: Multiple sclerosis
     Dosage: FOR ONE WEEK
     Route: 050
  2. TECFIDERA [Suspect]
     Active Substance: DIMETHYL FUMARATE
     Route: 050
  3. IBUPROFEN [Concomitant]
     Active Substance: IBUPROFEN
     Route: 050
  4. SIMVASTATIN [Concomitant]
     Active Substance: SIMVASTATIN
     Route: 050

REACTIONS (8)
  - Skin disorder [Unknown]
  - Cognitive disorder [Unknown]
  - Bladder disorder [Unknown]
  - Fatigue [Unknown]
  - Alopecia [Unknown]
  - Pruritus [Unknown]
  - Diarrhoea [Unknown]
  - Flushing [Recovered/Resolved]
